FAERS Safety Report 6075398-1 (Version None)
Quarter: 2009Q1

REPORT INFORMATION
  Report Type: 
  Country: None (occurrence: None)
  Receive Date: 20090212
  Receipt Date: 20090205
  Transmission Date: 20090719
  Serious: Yes (Hospitalization)
  Sender: FDA-Public Use
  Company Number: FR-ASTRAZENECA-2009CG00334

PATIENT
  Age: 63 Year
  Sex: Male

DRUGS (2)
  1. CRESTOR [Suspect]
     Route: 048
  2. ANTIDIABETICS [Concomitant]
     Indication: DIABETES MELLITUS

REACTIONS (1)
  - IIIRD NERVE PARALYSIS [None]
